FAERS Safety Report 14584223 (Version 1)
Quarter: 2018Q1

REPORT INFORMATION
  Report Type: Spontaneous
  Country: US (occurrence: US)
  Receive Date: 20180228
  Receipt Date: 20180228
  Transmission Date: 20180509
  Serious: No
  Sender: FDA-Public Use
  Company Number: US-IRONWOOD PHARMACEUTICALS, INC.-IRWD2017004032

PATIENT
  Sex: Male

DRUGS (1)
  1. ZURAMPIC [Suspect]
     Active Substance: LESINURAD
     Indication: HYPERURICAEMIA
     Dosage: N/A

REACTIONS (1)
  - Product use in unapproved indication [Unknown]
